FAERS Safety Report 5569399-7 (Version None)
Quarter: 2007Q4

REPORT INFORMATION
  Report Type: 
  Country: None (occurrence: None)
  Receive Date: 20071220
  Receipt Date: 20071219
  Transmission Date: 20080405
  Serious: Yes (Hospitalization)
  Sender: FDA-Public Use
  Company Number: HQWYE072207SEP07

PATIENT
  Sex: Female

DRUGS (7)
  1. AVLOCARDYL [Suspect]
     Route: 048
     Dates: end: 20070712
  2. TRILEPTAL [Suspect]
     Route: 048
     Dates: end: 20070712
  3. ATARAX [Suspect]
     Route: 048
     Dates: end: 20070712
  4. ACTONEL [Suspect]
     Route: 048
     Dates: end: 20070712
  5. PRAVASTATIN [Suspect]
     Dosage: 1 DF DAILY
     Route: 048
     Dates: end: 20070712
  6. ELAVIL [Suspect]
     Route: 048
     Dates: start: 20070501, end: 20070712
  7. TERCIAN [Suspect]
     Route: 048
     Dates: end: 20070712

REACTIONS (2)
  - HEPATITIS CHOLESTATIC [None]
  - MICROCYTIC ANAEMIA [None]
